FAERS Safety Report 4281029-3 (Version None)
Quarter: 2004Q1

REPORT INFORMATION
  Report Type: 
  Country: None (occurrence: None)
  Receive Date: 20040129
  Receipt Date: 20030306
  Transmission Date: 20041129
  Serious: No
  Sender: FDA-Public Use
  Company Number: US-BRISTOL-MYERS SQUIBB COMPANY-12203691

PATIENT
  Age: 69 Year
  Sex: Male

DRUGS (10)
  1. CISPLATIN [Suspect]
     Indication: BLADDER CANCER
     Dosage: OVER 4 HOURS
     Route: 042
     Dates: start: 20030225, end: 20030225
  2. GEMCITABINE [Concomitant]
     Indication: BLADDER CANCER
     Dosage: OVER 90 MINUTES
     Route: 042
  3. IFOSFAMIDE [Concomitant]
     Indication: BLADDER CANCER
     Dosage: OVER 30 MINUTES
     Route: 042
  4. MANNITOL [Concomitant]
     Dosage: OVER 4 HOURS
     Route: 042
  5. ZOFRAN [Concomitant]
     Indication: PREMEDICATION
  6. DECADRON [Concomitant]
     Indication: PREMEDICATION
  7. COUMADIN [Concomitant]
     Route: 048
  8. VICODIN [Concomitant]
     Dosage: 4-6 HOURS
  9. ALBUTEROL [Concomitant]
     Dosage: 2 PUFFS
     Route: 055
  10. LOVENOX [Concomitant]
     Route: 058

REACTIONS (2)
  - BLOOD PRESSURE DECREASED [None]
  - HEART RATE DECREASED [None]
